FAERS Safety Report 23852784 (Version 1)
Quarter: 2024Q2

REPORT INFORMATION
  Report Type: Spontaneous
  Country: US (occurrence: US)
  Receive Date: 20240514
  Receipt Date: 20240514
  Transmission Date: 20240716
  Serious: No
  Sender: FDA-Public Use
  Company Number: US-JNJFOC-20240455360

PATIENT
  Age: 72 Year
  Sex: Female

DRUGS (1)
  1. WOMENS ROGAINE UNSCENTED [Suspect]
     Active Substance: MINOXIDIL
     Indication: Alopecia
     Dosage: ABOUT THE SIZE OF A PING PONG BALL. I WOULD SAY THE HALF CAP FULL IS THE AMOUNT I AM USING,1 ONCE A
     Route: 061
     Dates: start: 20240109

REACTIONS (1)
  - Drug ineffective [Unknown]
